FAERS Safety Report 10230688 (Version 2)
Quarter: 2015Q1

REPORT INFORMATION
  Report Type: Spontaneous
  Country: US (occurrence: US)
  Receive Date: 20140611
  Receipt Date: 20150303
  Transmission Date: 20150720
  Serious: Yes (Other)
  Sender: FDA-Public Use
  Company Number: US-PFIZER INC-2014158567

PATIENT
  Age: 68 Year
  Sex: Female
  Weight: 113 kg

DRUGS (1)
  1. CELEBREX [Suspect]
     Active Substance: CELECOXIB
     Dosage: UNK

REACTIONS (2)
  - Nephrolithiasis [Unknown]
  - Drug hypersensitivity [Unknown]
